FAERS Safety Report 6566975-X (Version None)
Quarter: 2010Q1

REPORT INFORMATION
  Report Type: 
  Country: None (occurrence: None)
  Receive Date: 20100202
  Receipt Date: 20100128
  Transmission Date: 20100710
  Serious: Yes (Death, Hospitalization)
  Sender: FDA-Public Use
  Company Number: GB-ABBOTT-10P-167-0622883-00

PATIENT
  Sex: Male

DRUGS (2)
  1. SYNAGIS [Suspect]
     Indication: ANTIVIRAL PROPHYLAXIS
     Dosage: FIRST DOSE
     Route: 030
     Dates: start: 20091001, end: 20091001
  2. SYNAGIS [Suspect]
     Dosage: SECOND DOSE

REACTIONS (1)
  - BRONCHIOLITIS [None]
